FAERS Safety Report 7093538-2 (Version None)
Quarter: 2010Q4

REPORT INFORMATION
  Report Type: 
  Country: None (occurrence: None)
  Receive Date: 20101110
  Receipt Date: 20100927
  Transmission Date: 20110411
  Serious: Yes (Death, Hospitalization, Other)
  Sender: FDA-Public Use
  Company Number: US-BAXTER-2010BH000456

PATIENT
  Age: 76 Year
  Sex: Male
  Weight: 95 kg

DRUGS (17)
  1. HEPARIN SODIUM INJECTION [Suspect]
     Indication: HAEMODIALYSIS
     Route: 040
     Dates: start: 20060601, end: 20060801
  2. HEPARIN SODIUM INJECTION [Suspect]
     Route: 040
     Dates: start: 20060901, end: 20070301
  3. HEPARIN SODIUM INJECTION [Suspect]
     Route: 040
     Dates: start: 20070401, end: 20080101
  4. HEPARIN SODIUM INJECTION [Suspect]
     Route: 040
     Dates: start: 20080109, end: 20080109
  5. HUMULIN 70/30 [Concomitant]
     Indication: TYPE 1 DIABETES MELLITUS
     Route: 058
  6. HUMULIN 70/30 [Concomitant]
     Route: 058
  7. PLAVIX [Concomitant]
     Indication: PRODUCT USED FOR UNKNOWN INDICATION
     Route: 048
  8. LOPRESSOR [Concomitant]
     Indication: PRODUCT USED FOR UNKNOWN INDICATION
     Route: 048
  9. IMDUR [Concomitant]
     Indication: PRODUCT USED FOR UNKNOWN INDICATION
     Route: 048
  10. ASPIRIN [Concomitant]
     Indication: PRODUCT USED FOR UNKNOWN INDICATION
     Route: 048
  11. NEPHROCAPS [Concomitant]
     Indication: RENAL FAILURE CHRONIC
     Route: 048
  12. CARAFATE [Concomitant]
     Indication: PRODUCT USED FOR UNKNOWN INDICATION
     Route: 048
  13. TIMOPTIC [Concomitant]
     Indication: GLAUCOMA
     Route: 047
  14. NITRO-BID [Concomitant]
     Indication: CHEST PAIN
     Route: 061
  15. TYLENOL [Concomitant]
     Indication: PAIN
     Route: 048
  16. ATIVAN [Concomitant]
     Indication: PRODUCT USED FOR UNKNOWN INDICATION
     Route: 048
  17. LASIX [Concomitant]
     Indication: PRODUCT USED FOR UNKNOWN INDICATION
     Route: 042

REACTIONS (9)
  - ASTHENIA [None]
  - CARDIAC ARREST [None]
  - CHEST PAIN [None]
  - DISORIENTATION [None]
  - DYSPNOEA [None]
  - HYPOTENSION [None]
  - PULMONARY OEDEMA [None]
  - RENAL FAILURE [None]
  - SHOCK [None]
